FAERS Safety Report 8368096-2 (Version None)
Quarter: 2012Q2

REPORT INFORMATION
  Report Type: 
  Country: None (occurrence: None)
  Receive Date: 20120517
  Receipt Date: 20120510
  Transmission Date: 20120825
  Serious: Yes (Hospitalization)
  Sender: FDA-Public Use
  Company Number: US-FRI-1000030445

PATIENT
  Age: 72 Year
  Sex: Female

DRUGS (11)
  1. SIMVASTATIN [Concomitant]
     Indication: BLOOD CHOLESTEROL INCREASED
     Dosage: 40 MG
     Route: 048
  2. DALIRESP [Suspect]
     Indication: CHRONIC OBSTRUCTIVE PULMONARY DISEASE
     Dosage: 500 MCG
     Route: 048
     Dates: start: 20120101, end: 20120211
  3. DALIRESP [Suspect]
     Dosage: 500 MCG
     Route: 048
     Dates: start: 20120215
  4. SYMBICORT [Concomitant]
     Indication: CHRONIC OBSTRUCTIVE PULMONARY DISEASE
     Dosage: BID
  5. CALCIUM [Concomitant]
     Dosage: 1200 MG
     Route: 048
  6. SPIRIVA [Concomitant]
     Indication: CHRONIC OBSTRUCTIVE PULMONARY DISEASE
     Dosage: DAILY
  7. PRILOSEC [Concomitant]
     Indication: GASTROOESOPHAGEAL REFLUX DISEASE
     Dosage: 20 MG
     Route: 048
  8. IRON [Concomitant]
     Indication: IRON DEFICIENCY
     Dosage: BID
  9. PROAIR HFA [Concomitant]
     Dosage: AS NEEDED
  10. METOPROLOL [Concomitant]
     Indication: PALPITATIONS
     Dosage: 25 MG
     Route: 048
  11. VITAMIN D [Concomitant]
     Dosage: 800 MG
     Route: 048

REACTIONS (2)
  - PNEUMONIA [None]
  - THERAPEUTIC RESPONSE UNEXPECTED [None]
